FAERS Safety Report 13334207 (Version 3)
Quarter: 2018Q3

REPORT INFORMATION
  Report Type: Spontaneous
  Country: US (occurrence: US)
  Receive Date: 20170314
  Receipt Date: 20180919
  Transmission Date: 20181010
  Serious: Yes (Other)
  Sender: FDA-Public Use
  Company Number: US-JNJFOC-20170111995

PATIENT
  Age: 66 Year
  Sex: Female
  Weight: 54 kg

DRUGS (36)
  1. IMBRUVICA [Suspect]
     Active Substance: IBRUTINIB
     Indication: CHRONIC LYMPHOCYTIC LEUKAEMIA
     Route: 048
     Dates: start: 201604, end: 2016
  2. HYDROXYZINE HCL [Concomitant]
     Active Substance: HYDROXYZINE HYDROCHLORIDE
     Indication: HYPERSENSITIVITY
     Dosage: 10 MG ONCE NIGHTLY, 25 TO 30 MG PRIOR TO IVIG
  3. VITAMIN K2 [Concomitant]
     Active Substance: MENAQUINONE 6
  4. IMBRUVICA [Suspect]
     Active Substance: IBRUTINIB
     Indication: CHRONIC LYMPHOCYTIC LEUKAEMIA
     Route: 048
     Dates: start: 20150401
  5. IMBRUVICA [Suspect]
     Active Substance: IBRUTINIB
     Indication: CHRONIC LYMPHOCYTIC LEUKAEMIA
     Route: 048
     Dates: start: 2016, end: 2017
  6. VITAMIN D3 [Concomitant]
     Active Substance: CHOLECALCIFEROL
     Indication: VITAMIN SUPPLEMENTATION
     Dosage: 500 IU K2 90 MCG, QD
     Route: 048
  7. XIFAXAN [Concomitant]
     Active Substance: RIFAXIMIN
  8. NYSTATIN. [Concomitant]
     Active Substance: NYSTATIN
  9. EPIPEN [Concomitant]
     Active Substance: EPINEPHRINE
  10. BROMELAIN [Concomitant]
     Active Substance: BROMELAINS
     Indication: ENZYME SUPPLEMENTATION
     Route: 048
  11. HYDROCORTISONE. [Concomitant]
     Active Substance: HYDROCORTISONE
  12. CLINDAMYCIN. [Concomitant]
     Active Substance: CLINDAMYCIN
  13. DORZOLAMIDE [Concomitant]
     Active Substance: DORZOLAMIDE
  14. CYANOCOBALAMIN. [Concomitant]
     Active Substance: CYANOCOBALAMIN
  15. MAGNESIUM GLUCONATE [Concomitant]
     Active Substance: MAGNESIUM GLUCONATE
     Indication: VITAMIN SUPPLEMENTATION
     Route: 048
  16. IMMUNOGLOBULIN HUMAN NORMAL [Concomitant]
     Active Substance: HUMAN IMMUNOGLOBULIN G
     Dosage: EVERY FEW MONTHS
  17. ONDANSETRON [Concomitant]
     Active Substance: ONDANSETRON
     Indication: ABDOMINAL DISCOMFORT
     Dosage: 2 PO AM
  18. ELDERBERRY [Concomitant]
     Active Substance: HERBALS
     Indication: PHYTOTHERAPY
     Dosage: 3 DAYS A MONTH
  19. TYLENOL [Concomitant]
     Active Substance: ACETAMINOPHEN
     Indication: PAIN
     Dosage: AS NEEDED
  20. IMBRUVICA [Suspect]
     Active Substance: IBRUTINIB
     Indication: CHRONIC LYMPHOCYTIC LEUKAEMIA
     Route: 048
     Dates: start: 201701
  21. VITAMIN K2 [Concomitant]
     Active Substance: MENAQUINONE 6
  22. CYANOCOBALAMIN. [Concomitant]
     Active Substance: CYANOCOBALAMIN
     Indication: VITAMIN SUPPLEMENTATION
     Route: 060
  23. CYANOCOBALAMIN. [Concomitant]
     Active Substance: CYANOCOBALAMIN
  24. IMBRUVICA [Suspect]
     Active Substance: IBRUTINIB
     Indication: CHRONIC LYMPHOCYTIC LEUKAEMIA
     Route: 048
     Dates: start: 20170401
  25. IMBRUVICA [Suspect]
     Active Substance: IBRUTINIB
     Indication: CHRONIC LYMPHOCYTIC LEUKAEMIA
     Route: 048
     Dates: start: 20160429
  26. VITAMIN D3 [Concomitant]
     Active Substance: CHOLECALCIFEROL
     Indication: VITAMIN SUPPLEMENTATION
     Route: 048
  27. FLUTICASONE. [Concomitant]
     Active Substance: FLUTICASONE
     Indication: HYPERSENSITIVITY
  28. LATANOPROST. [Concomitant]
     Active Substance: LATANOPROST
  29. MAXALT [Concomitant]
     Active Substance: RIZATRIPTAN BENZOATE
     Indication: MIGRAINE
     Dosage: DISINTEGRATING TABLETS
  30. MOMETASONE [Concomitant]
     Active Substance: MOMETASONE
  31. CYANOCOBALAMIN W/FOLIC ACID/PYRIDOXINE HCL [Concomitant]
  32. BEANO [Concomitant]
     Active Substance: ASPERGILLUS NIGER .ALPHA.-GALACTOSIDASE
     Dosage: 4?6 TIME WEEK
  33. CHLORHEXIDINE GLUCONATE. [Concomitant]
     Active Substance: CHLORHEXIDINE GLUCONATE
     Dosage: ORAL RINSE
  34. BIFIDOBACTERIUM LACTIS [Concomitant]
     Active Substance: BIFIDOBACTERIUM ANIMALIS LACTIS
  35. CHLORHEXIDINE [Concomitant]
     Active Substance: CHLORHEXIDINE
  36. HYDROXYZINE [Concomitant]
     Active Substance: HYDROXYZINE HYDROCHLORIDE

REACTIONS (28)
  - Muscle disorder [Unknown]
  - Myalgia [Not Recovered/Not Resolved]
  - Dysbacteriosis [Recovered/Resolved]
  - Gastrointestinal oedema [Recovered/Resolved]
  - Fluid retention [Unknown]
  - Muscular weakness [Unknown]
  - Drug dose omission [Unknown]
  - Abdominal discomfort [Not Recovered/Not Resolved]
  - Onychoclasis [Not Recovered/Not Resolved]
  - Pain in extremity [Unknown]
  - Flatulence [Recovered/Resolved]
  - Discomfort [Unknown]
  - Hernia [Recovered/Resolved]
  - Iron deficiency [Not Recovered/Not Resolved]
  - Bone pain [Not Recovered/Not Resolved]
  - Skin fissures [Not Recovered/Not Resolved]
  - Head injury [Unknown]
  - Gastrointestinal pain [Recovered/Resolved]
  - Muscle atrophy [Not Recovered/Not Resolved]
  - Joint swelling [Recovering/Resolving]
  - Muscle spasms [Not Recovered/Not Resolved]
  - Peripheral swelling [Unknown]
  - Glaucoma [Unknown]
  - Weight decreased [Not Recovered/Not Resolved]
  - Skin exfoliation [Not Recovered/Not Resolved]
  - Hypotonia [Unknown]
  - Nausea [Not Recovered/Not Resolved]
  - Cataract [Unknown]

NARRATIVE: CASE EVENT DATE: 201511
